FAERS Safety Report 7523827-6 (Version None)
Quarter: 2011Q2

REPORT INFORMATION
  Report Type: 
  Country: None (occurrence: None)
  Receive Date: 20110603
  Receipt Date: 20110519
  Transmission Date: 20111010
  Serious: Yes (Death, Other)
  Sender: FDA-Public Use
  Company Number: AT-WATSON-2011-07588

PATIENT
  Age: 45 Year
  Sex: Female

DRUGS (7)
  1. IFOSFAMIDE [Suspect]
     Indication: T-CELL LYMPHOMA
  2. DOXORUBICIN HCL [Suspect]
     Indication: T-CELL LYMPHOMA
  3. VINCRISTINE [Suspect]
     Indication: T-CELL LYMPHOMA
  4. CARBOPLATIN [Suspect]
     Indication: T-CELL LYMPHOMA
  5. PREDNISONE [Suspect]
     Indication: T-CELL LYMPHOMA
  6. ETOPOSIDE [Suspect]
     Indication: T-CELL LYMPHOMA
  7. CYCLOPHOSPHAMIDE [Suspect]
     Indication: T-CELL LYMPHOMA

REACTIONS (2)
  - DRUG INEFFECTIVE [None]
  - INTESTINAL PERFORATION [None]
